FAERS Safety Report 5665158-5 (Version None)
Quarter: 2008Q1

REPORT INFORMATION
  Report Type: 
  Country: None (occurrence: None)
  Receive Date: 20080314
  Receipt Date: 20080310
  Transmission Date: 20080703
  Serious: Yes (Other)
  Sender: FDA-Public Use
  Company Number: CA-PFIZER INC-2008022458

PATIENT
  Age: 60 Year
  Sex: Male

DRUGS (5)
  1. VIAGRA [Suspect]
     Route: 048
  2. PREVACID [Concomitant]
  3. METOCLOPRAMIDE [Concomitant]
  4. ASPIRIN [Concomitant]
  5. LECTOPAM TAB [Concomitant]

REACTIONS (2)
  - DYSPHAGIA [None]
  - OESOPHAGEAL OBSTRUCTION [None]
